FAERS Safety Report 8281721-X (Version None)
Quarter: 2012Q2

REPORT INFORMATION
  Report Type: 
  Country: None (occurrence: None)
  Receive Date: 20120410
  Receipt Date: 20120327
  Transmission Date: 20120825
  Serious: Yes (Life-Threatening)
  Sender: FDA-Public Use
  Company Number: DSM-2012-00264

PATIENT
  Age: 72 Year
  Sex: Female

DRUGS (3)
  1. OLMESARTAN MEDOXOMIL [Suspect]
     Indication: HYPERTENSION
     Dosage: 40 MG,ORAL
     Route: 048
     Dates: start: 20110101, end: 20120101
  2. ARIMIDEX [Suspect]
     Indication: BREAST CANCER
     Dosage: 1 MG,ORAL
     Route: 048
     Dates: start: 20110101, end: 20120101
  3. CASCARA SAGRADA (RHAMNUS PURSHIANA) (RHAMNUS PURSHIANA) [Suspect]
     Indication: CONSTIPATION
     Dosage: ORAL
     Route: 048
     Dates: start: 20120101, end: 20120101

REACTIONS (6)
  - PLATELET COUNT DECREASED [None]
  - HEPATITIS ACUTE [None]
  - PROTHROMBIN TIME PROLONGED [None]
  - HYPERAMMONAEMIA [None]
  - BLOOD FIBRINOGEN DECREASED [None]
  - ACTIVATED PARTIAL THROMBOPLASTIN TIME PROLONGED [None]
